FAERS Safety Report 9620081 (Version 1)
Quarter: 2013Q4

REPORT INFORMATION
  Report Type: Spontaneous
  Country: TR (occurrence: TR)
  Receive Date: 20131014
  Receipt Date: 20131014
  Transmission Date: 20140711
  Serious: Yes (Hospitalization)
  Sender: FDA-Public Use
  Company Number: TR-MYLANLABS-2013S1022269

PATIENT
  Age: 4 Year
  Sex: Female

DRUGS (1)
  1. AMITRIPTYLINE [Suspect]
     Route: 048

REACTIONS (3)
  - Encephalitis [Recovered/Resolved]
  - Accidental exposure to product by child [Recovered/Resolved]
  - Toxicity to various agents [Recovered/Resolved]
